FAERS Safety Report 6371533-6 (Version None)
Quarter: 2009Q3

REPORT INFORMATION
  Report Type: 
  Country: None (occurrence: None)
  Receive Date: 20090923
  Receipt Date: 20080229
  Transmission Date: 20100115
  Serious: Yes (Hospitalization, Other)
  Sender: FDA-Public Use
  Company Number: US-ASTRAZENECA-2007UW19018

PATIENT
  Age: 9275 Day
  Sex: Female
  Weight: 183.7 kg

DRUGS (14)
  1. SEROQUEL [Suspect]
     Indication: SCHIZOAFFECTIVE DISORDER
     Dosage: 25 MG, 100 MG, 200 MG
     Route: 048
     Dates: start: 19980426
  2. SEROQUEL [Suspect]
     Route: 048
     Dates: start: 19971224
  3. SEROQUEL [Suspect]
     Route: 048
  4. SEROQUEL [Suspect]
     Route: 048
  5. SEROQUEL [Suspect]
     Route: 048
  6. PAXIL [Concomitant]
     Dates: start: 20070801
  7. PAXIL [Concomitant]
     Dosage: 40 MG TO 80 MG
     Route: 048
     Dates: start: 19980220
  8. WELLBUTRIN [Concomitant]
     Dates: start: 20070801
  9. ALBUTEROL [Concomitant]
     Dates: start: 19980127
  10. THEOPHYLLINE [Concomitant]
     Dates: start: 19980301
  11. CYCRIN [Concomitant]
     Dates: start: 19980301
  12. PREDNISONE [Concomitant]
     Dates: start: 19980301
  13. TRIAMTERENE AND HYDROCHLOROTHIAZIDE [Concomitant]
     Dosage: 75/50 MG EVERYDAY
     Route: 048
     Dates: start: 19980301
  14. LEVOTHYROXINE SODIUM [Concomitant]
     Indication: HYPOTHYROIDISM
     Dosage: 100 MCG TO 200 MCG
     Route: 048
     Dates: start: 19940923

REACTIONS (7)
  - BLOOD CHOLESTEROL INCREASED [None]
  - DIABETES MELLITUS [None]
  - DIABETIC NEUROPATHY [None]
  - GLUCOSE TOLERANCE IMPAIRED [None]
  - HYPERCHOLESTEROLAEMIA [None]
  - TYPE 1 DIABETES MELLITUS [None]
  - TYPE 2 DIABETES MELLITUS [None]
